FAERS Safety Report 6333800-1 (Version None)
Quarter: 2009Q3

REPORT INFORMATION
  Report Type: 
  Country: None (occurrence: None)
  Receive Date: 20090829
  Receipt Date: 20090610
  Transmission Date: 20100115
  Serious: No
  Sender: FDA-Public Use
  Company Number: US-ABBOTT-09P-163-0579153-00

PATIENT
  Sex: Male
  Weight: 74.91 kg

DRUGS (5)
  1. SIMCOR [Suspect]
     Indication: HIGH DENSITY LIPOPROTEIN DECREASED
     Dates: start: 20090301
  2. DISIPROMINE [Concomitant]
     Indication: DEPRESSION
  3. PEROXATINE [Concomitant]
     Indication: DEPRESSION
  4. FISH OIL [Concomitant]
     Indication: ROUTINE HEALTH MAINTENANCE
  5. FLAX SEED OIL [Concomitant]
     Indication: ROUTINE HEALTH MAINTENANCE

REACTIONS (3)
  - CONSTIPATION [None]
  - FLUSHING [None]
  - NAUSEA [None]
